FAERS Safety Report 4755525-6 (Version None)
Quarter: 2005Q3

REPORT INFORMATION
  Report Type: 
  Country: None (occurrence: None)
  Receive Date: 20050830
  Receipt Date: 20050504
  Transmission Date: 20060218
  Serious: No
  Sender: FDA-Public Use
  Company Number: US-BRISTOL-MYERS SQUIBB COMPANY-12957098

PATIENT
  Age: 22 Year
  Sex: Male
  Weight: 82 kg

DRUGS (2)
  1. ABILIFY [Suspect]
     Indication: BIPOLAR DISORDER
     Dosage: INCREASED TO 15 MG DAILY THEN DISCONTINUED.
     Dates: start: 20041101
  2. CARBATROL [Concomitant]

REACTIONS (3)
  - AGGRESSION [None]
  - AGITATION [None]
  - ANGER [None]
